FAERS Safety Report 4390302-X (Version None)
Quarter: 2004Q2

REPORT INFORMATION
  Report Type: 
  Country: None (occurrence: None)
  Receive Date: 20040628
  Receipt Date: 20040614
  Transmission Date: 20050107
  Serious: Yes (Hospitalization)
  Sender: FDA-Public Use
  Company Number: 2004040427

PATIENT
  Age: 47 Year
  Sex: Female
  Weight: 80 kg

DRUGS (1)
  1. FLUCONAZOLE [Suspect]
     Indication: ANTIFUNGAL PROPHYLAXIS
     Dosage: 1400 MG (1400 MG, 1 IN 1 D), ORAL
     Route: 048
     Dates: start: 20040318, end: 20040322

REACTIONS (2)
  - ABDOMINAL PAIN UPPER [None]
  - HYPONATRAEMIA [None]
